FAERS Safety Report 18909021 (Version 1)
Quarter: 2021Q1

REPORT INFORMATION
  Report Type: Spontaneous
  Country: US (occurrence: US)
  Receive Date: 20210218
  Receipt Date: 20210218
  Transmission Date: 20210420
  Serious: No
  Sender: FDA-Public Use
  Company Number: US-TEVA-2021-US-1879609

PATIENT
  Sex: Male

DRUGS (1)
  1. CARISOPRODOL. [Suspect]
     Active Substance: CARISOPRODOL

REACTIONS (1)
  - Drug ineffective [Unknown]
